FAERS Safety Report 16418587 (Version 1)
Quarter: 2019Q2

REPORT INFORMATION
  Report Type: Spontaneous
  Country: US (occurrence: US)
  Receive Date: 20190612
  Receipt Date: 20190612
  Transmission Date: 20190711
  Serious: Yes (Other)
  Sender: FDA-Public Use
  Company Number: US-SUN PHARMACEUTICAL INDUSTRIES LTD-2018US-180686

PATIENT
  Sex: Female

DRUGS (1)
  1. ABSORICA [Suspect]
     Active Substance: ISOTRETINOIN
     Indication: ACNE
     Dosage: 40 MG, BID
     Route: 065
     Dates: start: 20170909, end: 20180319

REACTIONS (2)
  - Tinnitus [Unknown]
  - Deafness [Unknown]

NARRATIVE: CASE EVENT DATE: 2017
